FAERS Safety Report 15723958 (Version 7)
Quarter: 2020Q1

REPORT INFORMATION
  Report Type: Other
  Country: US (occurrence: US)
  Receive Date: 20181214
  Receipt Date: 20200126
  Transmission Date: 20200409
  Serious: Yes (Hospitalization, Other)
  Sender: FDA-Public Use
  Company Number: US-ACORDA-ACO_155896_2018

PATIENT
  Age: 64 Year
  Sex: Female

DRUGS (2)
  1. AMPYRA [Suspect]
     Active Substance: DALFAMPRIDINE
     Indication: GAIT DISTURBANCE
     Dosage: 10 MILLIGRAM, BID
     Route: 048
     Dates: start: 2014
  2. AMPYRA [Suspect]
     Active Substance: DALFAMPRIDINE
     Indication: MULTIPLE SCLEROSIS

REACTIONS (23)
  - Neurological procedural complication [Unknown]
  - Crohn^s disease [Not Recovered/Not Resolved]
  - Neuropathy peripheral [Not Recovered/Not Resolved]
  - Norovirus test positive [Unknown]
  - Burns second degree [Unknown]
  - Gallbladder disorder [Not Recovered/Not Resolved]
  - Multiple sclerosis [Not Recovered/Not Resolved]
  - Renal failure [Not Recovered/Not Resolved]
  - Localised infection [Unknown]
  - Deep vein thrombosis [Not Recovered/Not Resolved]
  - Blood blister [Recovered/Resolved]
  - Pain in extremity [Unknown]
  - Migraine [Not Recovered/Not Resolved]
  - Fluid retention [Not Recovered/Not Resolved]
  - Iron deficiency anaemia [Not Recovered/Not Resolved]
  - Injection site indentation [Not Recovered/Not Resolved]
  - Weight increased [Not Recovered/Not Resolved]
  - Insomnia [Not Recovered/Not Resolved]
  - Lymphadenopathy [Recovered/Resolved]
  - Abscess limb [Recovered/Resolved]
  - Platelet count decreased [Not Recovered/Not Resolved]
  - Vomiting [Unknown]
  - Multiple sclerosis relapse [Unknown]

NARRATIVE: CASE EVENT DATE: 2017
